FAERS Safety Report 18935437 (Version 2)
Quarter: 2021Q1

REPORT INFORMATION
  Report Type: Report from Study
  Country: US (occurrence: US)
  Receive Date: 20210224
  Receipt Date: 20210323
  Transmission Date: 20210420
  Serious: No
  Sender: FDA-Public Use
  Company Number: US-IPSEN BIOPHARMACEUTICALS, INC.-2021-04290

PATIENT
  Age: 61 Year
  Sex: Female

DRUGS (16)
  1. CLONAZEPAM. [Concomitant]
     Active Substance: CLONAZEPAM
     Dosage: 1TABLET ONCE A DAY
     Route: 048
  2. MULTIVITAMIN [Concomitant]
     Active Substance: VITAMINS
     Dosage: 1 TABLET ONCE A DAY
     Route: 048
  3. BACLOFEN. [Concomitant]
     Active Substance: BACLOFEN
     Dosage: 1 TABLET QID
     Route: 048
     Dates: end: 20210209
  4. CLARITIN [Concomitant]
     Active Substance: LORATADINE
     Dosage: 1 TABLET ONCE A DAY
     Route: 048
  5. SUDAFED [Concomitant]
     Active Substance: PSEUDOEPHEDRINE HYDROCHLORIDE
     Dosage: 1 TABLET AS NEEDED ORALLY EVERY 12 HOURS
     Route: 048
  6. CYCLOBENZAPRINE HCL [Concomitant]
     Active Substance: CYCLOBENZAPRINE HYDROCHLORIDE
     Dosage: 1 TABLET AT BEDTIME AS NEEDED ONCE A DAY
     Route: 048
  7. ENALAPRIL MALEATE. [Concomitant]
     Active Substance: ENALAPRIL MALEATE
     Dosage: 1 TABLET ONCE A DAY
     Route: 048
  8. CYANOCOBALAMIN. [Concomitant]
     Active Substance: CYANOCOBALAMIN
     Dosage: 1 ML INJECTION Q MONTH WITH 1 CC SYRINGES AND 27 GAUGE NEEDLES
     Route: 065
  9. CALCIUM + D3 [Concomitant]
     Active Substance: CALCIUM\CHOLECALCIFEROL
     Dosage: 600?200 MG UNIT 1 TABLET WITH A MEAL ORALLY BID
     Route: 048
  10. PROTONIX [Concomitant]
     Active Substance: PANTOPRAZOLE SODIUM
     Dosage: 1 TABLET ONCE A DAY
     Route: 048
  11. FLONASE ALLERGY RELIEF [Concomitant]
     Active Substance: FLUTICASONE PROPIONATE
     Dosage: 50 MCG/ACT SUSPENSION 1 SPRAY IN EACH NOSTRIL, ONCE A DAY
     Route: 045
  12. FERROUS SULFATE. [Concomitant]
     Active Substance: FERROUS SULFATE
     Dosage: 325 (65 FE) MILLIGRAM TABLET 1 TABLET ONCE A DAY
     Route: 048
  13. DYSPORT [Suspect]
     Active Substance: ABOBOTULINUMTOXINA
     Indication: TORTICOLLIS
     Dosage: 337.5 UNITS
     Route: 030
     Dates: start: 20201217, end: 20201217
  14. GABAPENTIN. [Concomitant]
     Active Substance: GABAPENTIN
     Dosage: 1 CAPSULE BID
     Route: 048
  15. ATORVASTATIN CALCIUM. [Concomitant]
     Active Substance: ATORVASTATIN CALCIUM
     Dosage: 1 TABLET ONCE A DAY
     Route: 048
  16. IBUPROFEN. [Concomitant]
     Active Substance: IBUPROFEN
     Dosage: 1 TABLET WITH FOOD OR MILK AS NEEDED ORALLY THREE TIMES A DAY

REACTIONS (3)
  - Ulcer [Unknown]
  - Headache [Unknown]
  - Abdominal pain upper [Unknown]
